FAERS Safety Report 6066122-7 (Version None)
Quarter: 2009Q1

REPORT INFORMATION
  Report Type: 
  Country: None (occurrence: None)
  Receive Date: 20090205
  Receipt Date: 20090203
  Transmission Date: 20090719
  Serious: Yes (Other)
  Sender: FDA-Public Use
  Company Number: US-BAYER-200841530NA

PATIENT
  Age: 23 Year
  Sex: Female

DRUGS (1)
  1. MIRENA [Suspect]
     Indication: CONTRACEPTION
     Route: 015
     Dates: start: 20080101, end: 20081219

REACTIONS (4)
  - ABORTION [None]
  - ANTEPARTUM HAEMORRHAGE [None]
  - COMPLICATION OF DEVICE REMOVAL [None]
  - PREGNANCY WITH CONTRACEPTIVE DEVICE [None]
